FAERS Safety Report 9861222 (Version 2)
Quarter: 2014Q1

REPORT INFORMATION
  Report Type: Spontaneous
  Country: None (occurrence: US)
  Receive Date: 20140202
  Receipt Date: 20140202
  Transmission Date: 20141002
  Serious: No
  Sender: FDA-Public Use
  Company Number: US-ALLERGAN-1304088US

PATIENT
  Age: 55 Year
  Sex: Female

DRUGS (2)
  1. BOTOX COSMETIC [Suspect]
     Indication: SKIN WRINKLING
     Dosage: 16 UNITS, SINGLE
     Route: 030
     Dates: start: 20130308, end: 20130308
  2. JUVEDERM ULTRA PLUS [Suspect]
     Indication: DERMAL FILLER INJECTION
     Dosage: UNK, SINGLE
     Dates: start: 20130308, end: 20130308

REACTIONS (5)
  - Swelling face [Recovered/Resolved]
  - Erythema [Recovered/Resolved]
  - Wrong technique in drug usage process [Unknown]
  - Eye swelling [Recovered/Resolved]
  - Pruritus [Recovered/Resolved]
